FAERS Safety Report 9649377 (Version 2)
Quarter: 2013Q4

REPORT INFORMATION
  Report Type: Report from Study
  Country: JP (occurrence: JP)
  Receive Date: 20131028
  Receipt Date: 20131028
  Transmission Date: 20140711
  Serious: Yes (Other)
  Sender: FDA-Public Use
  Company Number: JP-BRISTOL-MYERS SQUIBB COMPANY-16311920

PATIENT
  Age: 26 Year
  Sex: Male

DRUGS (4)
  1. ABILIFY TABS [Suspect]
     Indication: SCHIZOPHRENIA
     Dosage: REG 2-24MG-12OCT11-8DEC11
     Route: 048
     Dates: start: 20110930, end: 20111208
  2. RISPERIDONE [Suspect]
     Dosage: REG1-UN-20OC11?7MG-21-30OC11:10D?6MG-31-8NO11:9D?5MG-9-15NO11:7D?4MG-16-24NO11:9D
     Route: 048
  3. BIPERIDEN HCL [Concomitant]
  4. BIFIDOBACTERIUM BIFIDUM [Concomitant]

REACTIONS (2)
  - Thought broadcasting [Recovered/Resolved]
  - Hallucination, auditory [Recovered/Resolved]
